FAERS Safety Report 9153665 (Version 1)
Quarter: 2013Q1

REPORT INFORMATION
  Report Type: Spontaneous
  Country: AR (occurrence: AR)
  Receive Date: 20130311
  Receipt Date: 20130311
  Transmission Date: 20140127
  Serious: Yes (Hospitalization)
  Sender: FDA-Public Use
  Company Number: PHHY2013AR023250

PATIENT
  Age: 66 Year
  Sex: Female

DRUGS (3)
  1. DIOVAN [Suspect]
     Indication: HYPERTENSION
     Dosage: 320 MG, QD
     Route: 048
  2. ANTICOAGULANTS [Concomitant]
  3. CHEMOTHERAPEUTICS [Concomitant]

REACTIONS (1)
  - Colon cancer [Recovering/Resolving]
